FAERS Safety Report 7658580-9 (Version None)
Quarter: 2011Q3

REPORT INFORMATION
  Report Type: 
  Country: None (occurrence: None)
  Receive Date: 20110804
  Receipt Date: 20110804
  Transmission Date: 20111222
  Serious: Yes (Life-Threatening, Hospitalization, Disabling, Other)
  Sender: FDA-Public Use
  Company Number: None

PATIENT
  Sex: Female
  Weight: 57.6068 kg

DRUGS (2)
  1. TRAMADOL HCL [Suspect]
     Indication: PAIN
     Dosage: 1 EVERY 4-6 HRS. PAIN 1037615 LESS THAN MONTH
  2. GABAPENTIN [Suspect]
     Indication: HEADACHE
     Dosage: GABAPENTIN 2-CAP 4 TIMES DAILY 995040

REACTIONS (4)
  - CONVULSION [None]
  - SPINAL FRACTURE [None]
  - ANKLE FRACTURE [None]
  - FALL [None]
